FAERS Safety Report 4362851-1 (Version None)
Quarter: 2004Q2

REPORT INFORMATION
  Report Type: 
  Country: None (occurrence: None)
  Receive Date: 20040517
  Receipt Date: 20040331
  Transmission Date: 20050107
  Serious: No
  Sender: FDA-Public Use
  Company Number: S04-USA-01818-01

PATIENT
  Age: 90 Year
  Sex: Female

DRUGS (5)
  1. NAMENDA [Suspect]
     Indication: DEMENTIA ALZHEIMER'S TYPE
     Dosage: 5 MG QD PO
     Route: 048
     Dates: start: 20040323, end: 20040329
  2. NAMENDA [Suspect]
     Indication: DEMENTIA ALZHEIMER'S TYPE
     Dosage: 10 MG QD PO
     Route: 048
     Dates: start: 20040330
  3. REMINYL [Concomitant]
  4. LEVOZYL(LEVOTHYROXINE SODIUM) [Concomitant]
  5. ASPIRIN [Concomitant]

REACTIONS (2)
  - BACK PAIN [None]
  - DIZZINESS [None]
